FAERS Safety Report 15286237 (Version 1)
Quarter: 2018Q3

REPORT INFORMATION
  Report Type: Spontaneous
  Country: US (occurrence: US)
  Receive Date: 20180816
  Receipt Date: 20180816
  Transmission Date: 20181010
  Serious: Yes (Other)
  Sender: FDA-Public Use
  Company Number: US-SA-2018SA154763

PATIENT

DRUGS (1)
  1. AMBIEN [Suspect]
     Active Substance: ZOLPIDEM TARTRATE

REACTIONS (6)
  - Dizziness [Unknown]
  - Restlessness [Unknown]
  - Mental disorder [Unknown]
  - Amnesia [Unknown]
  - Suicidal ideation [Unknown]
  - Disorientation [Unknown]
